FAERS Safety Report 8410062-2 (Version None)
Quarter: 2012Q2

REPORT INFORMATION
  Report Type: 
  Country: None (occurrence: None)
  Receive Date: 20120605
  Receipt Date: 20120530
  Transmission Date: 20120825
  Serious: Yes (Other)
  Sender: FDA-Public Use
  Company Number: US-BAYER-2012-017356

PATIENT
  Age: 34 Year
  Sex: Female
  Weight: 111.57 kg

DRUGS (12)
  1. YASMIN [Suspect]
     Indication: PREMENSTRUAL SYNDROME
  2. CIPROFLOXACIN [Concomitant]
     Dosage: 50 MG, UNK
     Dates: start: 20070814
  3. TOPAMAX [Concomitant]
     Dosage: 50 MG, HS
     Dates: start: 20070822
  4. MORPHINE [Concomitant]
  5. SINGULAIR [Concomitant]
     Dosage: 10 MG, HS
     Dates: start: 20070822, end: 20081117
  6. SULFAMETHOXAZOLE + TRIMETHOPRIM [Concomitant]
     Dosage: UNK
     Dates: start: 20070724
  7. YASMIN [Suspect]
     Indication: CONTRACEPTION
     Dosage: UNK
     Route: 048
     Dates: start: 20070201, end: 20091001
  8. YASMIN [Suspect]
     Indication: MENSTRUAL CYCLE MANAGEMENT
  9. CIPROFLOXACIN [Concomitant]
     Dosage: 500 MG, UNK
     Dates: start: 20070807
  10. LORTAB [Concomitant]
  11. PHENERGAN [Concomitant]
  12. ACETAMINOPHEN [Concomitant]
     Dosage: UNK
     Dates: start: 20070822

REACTIONS (5)
  - BILIARY DYSKINESIA [None]
  - DIARRHOEA [None]
  - ABDOMINAL PAIN [None]
  - ANXIETY [None]
  - DEPRESSION [None]
